FAERS Safety Report 13616126 (Version 1)
Quarter: 2017Q2

REPORT INFORMATION
  Report Type: Spontaneous
  Country: US (occurrence: US)
  Receive Date: 20170606
  Receipt Date: 20170606
  Transmission Date: 20170830
  Serious: No
  Sender: FDA-Public Use
  Company Number: US-GLENMARK PHARMACEUTICALS-2016GMK023247

PATIENT

DRUGS (2)
  1. PRENATAL VITAMINS [Concomitant]
     Active Substance: VITAMINS
     Indication: PRODUCT USED FOR UNKNOWN INDICATION
     Dosage: UNK
  2. HEATHER [Suspect]
     Active Substance: NORETHINDRONE
     Indication: CONTRACEPTION
     Dosage: 1 DF, OD (SAME TIME EVERYDAY)
     Route: 048
     Dates: start: 20160531, end: 20160609

REACTIONS (2)
  - Product substitution issue [Unknown]
  - Suppressed lactation [Not Recovered/Not Resolved]

NARRATIVE: CASE EVENT DATE: 201606
